FAERS Safety Report 18187079 (Version 6)
Quarter: 2023Q2

REPORT INFORMATION
  Report Type: Report from Study
  Country: US (occurrence: US)
  Receive Date: 20200824
  Receipt Date: 20230413
  Transmission Date: 20230722
  Serious: Yes (Hospitalization, Other)
  Sender: FDA-Public Use
  Company Number: US-SHIRE-US202027165

PATIENT
  Age: 73 Year
  Sex: Female
  Weight: 79 kg

DRUGS (40)
  1. HUMAN IMMUNOGLOBULIN G [Suspect]
     Active Substance: HUMAN IMMUNOGLOBULIN G
     Indication: Chronic inflammatory demyelinating polyradiculoneuropathy
     Dosage: 75 GRAM, Q3WEEKS
     Route: 042
     Dates: start: 20151103
  2. HUMAN IMMUNOGLOBULIN G [Suspect]
     Active Substance: HUMAN IMMUNOGLOBULIN G
     Indication: Psoriatic arthropathy
  3. HUMAN IMMUNOGLOBULIN G [Suspect]
     Active Substance: HUMAN IMMUNOGLOBULIN G
     Indication: Osteoporosis
  4. DIPHENHYDRAMINE [Concomitant]
     Active Substance: DIPHENHYDRAMINE
  5. STELARA [Concomitant]
     Active Substance: USTEKINUMAB
  6. ALLEGRA [Concomitant]
     Active Substance: FEXOFENADINE HYDROCHLORIDE
  7. BIOTIN [Concomitant]
     Active Substance: BIOTIN
  8. MELATONIN [Concomitant]
     Active Substance: MELATONIN
  9. XARELTO [Concomitant]
     Active Substance: RIVAROXABAN
  10. XOPENEX [Concomitant]
     Active Substance: LEVALBUTEROL HYDROCHLORIDE
  11. PROLIA [Concomitant]
     Active Substance: DENOSUMAB
  12. DICLOFENAC [Concomitant]
     Active Substance: DICLOFENAC
  13. GABAPENTIN [Concomitant]
     Active Substance: GABAPENTIN
  14. ACETAMINOPHEN [Concomitant]
     Active Substance: ACETAMINOPHEN
  15. LIDOCAINE [Concomitant]
     Active Substance: LIDOCAINE
  16. SODIUM CHLORIDE [Concomitant]
     Active Substance: SODIUM CHLORIDE
  17. EPINEPHRINE [Concomitant]
     Active Substance: EPINEPHRINE
  18. OTEZLA [Concomitant]
     Active Substance: APREMILAST
  19. MINERALS\VITAMINS [Concomitant]
     Active Substance: MINERALS\VITAMINS
  20. AREDSAN [Concomitant]
  21. SINGULAIR [Concomitant]
     Active Substance: MONTELUKAST SODIUM
  22. LEVOXYL [Concomitant]
     Active Substance: LEVOTHYROXINE SODIUM
  23. CRANBERRY [Concomitant]
     Active Substance: CRANBERRY
  24. MINERALS\VITAMINS [Concomitant]
     Active Substance: MINERALS\VITAMINS
  25. Lmx [Concomitant]
  26. LEVALBUTEROL TARTRATE [Concomitant]
     Active Substance: LEVALBUTEROL TARTRATE
  27. BREO ELLIPTA [Concomitant]
     Active Substance: FLUTICASONE FUROATE\VILANTEROL TRIFENATATE
     Dosage: UNK
     Route: 065
  28. DULOXETINE HYDROCHLORIDE [Concomitant]
     Active Substance: DULOXETINE HYDROCHLORIDE
     Dosage: UNK
     Route: 065
  29. FAMOTIDINE [Concomitant]
     Active Substance: FAMOTIDINE
     Dosage: UNK
     Route: 065
  30. LEVOTHYROXINE [Concomitant]
     Active Substance: LEVOTHYROXINE
     Dosage: UNK
     Route: 065
  31. PANTOPRAZOLE SODIUM [Concomitant]
     Active Substance: PANTOPRAZOLE SODIUM
     Dosage: UNK
     Route: 065
  32. MYCOPHENOLATE MOFETIL [Concomitant]
     Active Substance: MYCOPHENOLATE MOFETIL
  33. TREMFYA [Concomitant]
     Active Substance: GUSELKUMAB
  34. PFIZER-BIONTECH COVID-19 VACCINE [Concomitant]
     Active Substance: TOZINAMERAN
     Route: 065
  35. VITAMIN D [Concomitant]
     Active Substance: VITAMIN D NOS
     Route: 065
  36. GEMTESA [Concomitant]
     Active Substance: VIBEGRON
     Route: 065
  37. CALCIUM [Concomitant]
     Active Substance: CALCIUM
     Route: 065
  38. LOSARTAN POTASSIUM [Concomitant]
     Active Substance: LOSARTAN POTASSIUM
     Route: 065
  39. MODERNA COVID-19 VACCINE [Concomitant]
     Active Substance: ELASOMERAN
     Route: 065
  40. COSENTYX [Concomitant]
     Active Substance: SECUKINUMAB

REACTIONS (7)
  - Kidney infection [Unknown]
  - Headache [Unknown]
  - Multiple allergies [Unknown]
  - Arthritis [Unknown]
  - Urinary tract infection [Not Recovered/Not Resolved]
  - Pain [Unknown]
  - Fatigue [Unknown]

NARRATIVE: CASE EVENT DATE: 20220831
